FAERS Safety Report 4268809-5 (Version None)
Quarter: 2004Q1

REPORT INFORMATION
  Report Type: 
  Country: None (occurrence: None)
  Receive Date: 20040112
  Receipt Date: 20031117
  Transmission Date: 20041129
  Serious: Yes (Life-Threatening, Hospitalization, Disabling, Other)
  Sender: FDA-Public Use
  Company Number: WAES 0311USA01998

PATIENT
  Age: 65 Year
  Sex: Male
  Weight: 105 kg

DRUGS (8)
  1. ASPIRIN [Concomitant]
     Indication: ANGIOPATHY
  2. LIPITOR [Concomitant]
  3. PLAVIX [Concomitant]
     Indication: ANGIOPATHY
  4. CORTICOSTEROIDS (UNSPECIFIED) [Concomitant]
     Route: 051
     Dates: start: 20031001, end: 20031001
  5. VASOTEC [Concomitant]
     Route: 048
  6. LITHIUM CARBONATE [Concomitant]
  7. GLUCOPHAGE [Concomitant]
  8. VIOXX [Suspect]
     Route: 048
     Dates: start: 20020101, end: 20031021

REACTIONS (1)
  - GASTRIC ULCER PERFORATION [None]
